FAERS Safety Report 16197487 (Version 1)
Quarter: 2019Q2

REPORT INFORMATION
  Report Type: Spontaneous
  Country: US (occurrence: US)
  Receive Date: 20190413
  Receipt Date: 20190413
  Transmission Date: 20190711
  Serious: Yes (Disabling)
  Sender: FDA-Public Use
  Company Number: None

PATIENT
  Age: 75 Year
  Sex: Male
  Weight: 85.5 kg

DRUGS (7)
  1. COQ10 [Concomitant]
     Active Substance: UBIDECARENONE
  2. PRALUENT [Suspect]
     Active Substance: ALIROCUMAB
     Indication: CARDIOVASCULAR DISORDER
     Dosage: ?          QUANTITY:1 INJECTION(S);OTHER FREQUENCY:FORTNIGHTLY;?
     Route: 058
     Dates: start: 20180705, end: 20190327
  3. PRASUGREL. [Concomitant]
     Active Substance: PRASUGREL
  4. ISOSORBIDE. [Concomitant]
     Active Substance: ISOSORBIDE
  5. FISHOIL [Concomitant]
  6. OCCUVITE [Concomitant]
  7. ALLOPURINOL. [Concomitant]
     Active Substance: ALLOPURINOL

REACTIONS (3)
  - Low density lipoprotein increased [None]
  - Myalgia [None]
  - Product substitution issue [None]

NARRATIVE: CASE EVENT DATE: 20190101
